FAERS Safety Report 25102192 (Version 1)
Quarter: 2025Q1

REPORT INFORMATION
  Report Type: Spontaneous
  Country: US (occurrence: US)
  Receive Date: 20250320
  Receipt Date: 20250320
  Transmission Date: 20250408
  Serious: Yes (Other)
  Sender: MALLINCKRODT
  Company Number: US-MALLINCKRODT-MNK202501614

PATIENT
  Age: 77 Year
  Sex: Male

DRUGS (2)
  1. NITRIC OXIDE [Suspect]
     Active Substance: NITRIC OXIDE
     Indication: Pulmonary hypertension
     Route: 055
  2. NITRIC OXIDE [Suspect]
     Active Substance: NITRIC OXIDE
     Indication: Hypertrophic cardiomyopathy

REACTIONS (10)
  - Right ventricular dysfunction [Recovering/Resolving]
  - Systolic anterior motion of mitral valve [Unknown]
  - Condition aggravated [Unknown]
  - Mitral valve incompetence [Unknown]
  - Atrial fibrillation [Unknown]
  - Left ventricular dysfunction [Unknown]
  - Decreased ventricular preload [Unknown]
  - Cardiac amyloidosis [Unknown]
  - Hypotension [Unknown]
  - Product use issue [Unknown]
